FAERS Safety Report 4372892-6 (Version None)
Quarter: 2004Q2

REPORT INFORMATION
  Report Type: 
  Country: None (occurrence: None)
  Receive Date: 20040603
  Receipt Date: 20030627
  Transmission Date: 20050107
  Serious: Yes (Death)
  Sender: FDA-Public Use
  Company Number: F01200300530

PATIENT
  Age: 72 Year
  Sex: Male

DRUGS (3)
  1. (OXALIPLATIN) - SOLUTION - 85 MG/M2 [Suspect]
     Indication: GASTRIC CANCER STAGE IV WITH METASTASES
     Dosage: 135 MG Q2W, INTRAVENOUS
     Route: 042
     Dates: start: 20030430, end: 20030430
  2. FLUOROURACIL [Suspect]
     Dosage: 500 MG/M2 BOLUS-DAY 1, 8, 15 EVERY 4 WEEKS, INTRAVENOUS, A FEW HOURS
     Route: 042
     Dates: start: 20030508, end: 20030508
  3. LEUCOVORIN CALCIUM [Suspect]
     Dosage: 20 MG/M2 WEEKS 1, 2, 3 EVERY 4 WEEKS, INTRAVENOUS NOS, A FEW HOURS
     Route: 042
     Dates: start: 20030508, end: 20030508

REACTIONS (9)
  - ANURIA [None]
  - DEHYDRATION [None]
  - GASTRIC NEOPLASM [None]
  - HAEMATOCRIT DECREASED [None]
  - HAEMOGLOBIN DECREASED [None]
  - PANCREATIC NEOPLASM [None]
  - PERITONEAL NEOPLASM [None]
  - PULMONARY OEDEMA [None]
  - RENAL FAILURE [None]
